FAERS Safety Report 6517026-4 (Version None)
Quarter: 2009Q4

REPORT INFORMATION
  Report Type: 
  Country: None (occurrence: None)
  Receive Date: 20091223
  Receipt Date: 20091215
  Transmission Date: 20100525
  Serious: Yes (Hospitalization)
  Sender: FDA-Public Use
  Company Number: GXKR2009GB13498

PATIENT
  Age: 9 Year
  Sex: Male

DRUGS (6)
  1. VALPROIC ACID (NGX) [Suspect]
     Dosage: 33 MG/KG, QD
     Route: 065
  2. VALPROIC ACID (NGX) [Suspect]
     Dosage: 26 MG/KG, QD
     Route: 065
  3. LAMOTRIGINE (NGX) [Suspect]
     Dosage: 2 MG/KG, QD
     Route: 065
  4. CLOBAZAM [Suspect]
     Dosage: 1.5 MG/KG, QD
     Route: 065
  5. ETHOSUXIMIDE [Suspect]
     Dosage: 33 MG/KG, QD
     Route: 065
  6. PHENYTOIN [Concomitant]
     Indication: DEPRESSED LEVEL OF CONSCIOUSNESS
     Route: 065

REACTIONS (4)
  - BLISTER [None]
  - DEPRESSED LEVEL OF CONSCIOUSNESS [None]
  - LIVER FUNCTION TEST ABNORMAL [None]
  - OEDEMA [None]
